FAERS Safety Report 15227689 (Version 1)
Quarter: 2018Q3

REPORT INFORMATION
  Report Type: Spontaneous
  Country: FR (occurrence: FR)
  Receive Date: 20180801
  Receipt Date: 20180801
  Transmission Date: 20181010
  Serious: Yes (Hospitalization)
  Sender: FDA-Public Use
  Company Number: FR-PFIZER INC-2018300962

PATIENT
  Age: 37 Year
  Sex: Female

DRUGS (2)
  1. CYTOTEC [Suspect]
     Active Substance: MISOPROSTOL
     Dosage: 2 DF, SINGLE
     Route: 067
     Dates: start: 20180608, end: 20180608
  2. CYTOTEC [Suspect]
     Active Substance: MISOPROSTOL
     Indication: ABORTION SPONTANEOUS
     Dosage: 2 TABLETS ON 04JUN2018 AND 2 TABLETS ON 06JUN2018
     Route: 048
     Dates: start: 20180604, end: 20180606

REACTIONS (3)
  - Drug ineffective for unapproved indication [Recovered/Resolved]
  - Metrorrhagia [Recovered/Resolved]
  - Pelvic pain [Recovered/Resolved]

NARRATIVE: CASE EVENT DATE: 20180604
